FAERS Safety Report 6813979-5 (Version None)
Quarter: 2010Q3

REPORT INFORMATION
  Report Type: 
  Country: None (occurrence: None)
  Receive Date: 20100702
  Receipt Date: 20100113
  Transmission Date: 20110219
  Serious: Yes (Death)
  Sender: FDA-Public Use
  Company Number: US-ASTRAZENECA-2007UW08194

PATIENT
  Sex: Female

DRUGS (4)
  1. SEROQUEL [Suspect]
     Dosage: 25 TO 400 MG
     Route: 048
     Dates: start: 20040101
  2. NEURONTIN [Concomitant]
     Dates: start: 20040101
  3. NAPROXEN [Concomitant]
     Dates: start: 20040101
  4. PAXIL [Concomitant]
     Dates: start: 20040101

REACTIONS (2)
  - DEATH [None]
  - DIABETES MELLITUS [None]
